FAERS Safety Report 9662706 (Version 1)
Quarter: 2013Q4

REPORT INFORMATION
  Report Type: Spontaneous
  Country: US (occurrence: US)
  Receive Date: 20131031
  Receipt Date: 20131031
  Transmission Date: 20140711
  Serious: No
  Sender: FDA-Public Use
  Company Number: US-PURDUE-USA-2011-0072849

PATIENT
  Sex: Male
  Weight: 131 kg

DRUGS (2)
  1. OXYCONTIN (NDA 22-272) [Suspect]
     Indication: PAIN
     Dosage: 20 MG, BID
     Route: 048
  2. ROXICODONE [Concomitant]
     Indication: BREAKTHROUGH PAIN
     Dosage: 15 MG, UNK

REACTIONS (2)
  - Medication residue present [Unknown]
  - Drug effect decreased [Unknown]
